FAERS Safety Report 10259854 (Version 1)
Quarter: 2014Q2

REPORT INFORMATION
  Report Type: Spontaneous
  Country: US (occurrence: US)
  Receive Date: 20140625
  Receipt Date: 20140625
  Transmission Date: 20141212
  Serious: Yes (Other)
  Sender: FDA-Public Use
  Company Number: US-GLAXOSMITHKLINE-A1078309A

PATIENT
  Age: 64 Year
  Sex: Male

DRUGS (1)
  1. REQUIP XL [Suspect]
     Indication: PRODUCT USED FOR UNKNOWN INDICATION
     Route: 065
     Dates: start: 20130710

REACTIONS (2)
  - Brain neoplasm malignant [Unknown]
  - Parkinson^s disease [Unknown]
